FAERS Safety Report 4626910-8 (Version None)
Quarter: 2005Q1

REPORT INFORMATION
  Report Type: 
  Country: None (occurrence: None)
  Receive Date: 20050331
  Receipt Date: 20050322
  Transmission Date: 20050727
  Serious: Yes (Other)
  Sender: FDA-Public Use
  Company Number: 2005030878

PATIENT
  Age: 66 Year
  Sex: Female
  Weight: 60 kg

DRUGS (4)
  1. XALATAN [Suspect]
     Indication: OPEN ANGLE GLAUCOMA
     Dosage: (1 IN 1 D), TOPICAL
     Route: 061
     Dates: start: 20050201
  2. DEXAMETHASONE [Concomitant]
  3. INDOMETHACIN [Concomitant]
  4. TOBRAMYCIN [Concomitant]

REACTIONS (5)
  - CONDITION AGGRAVATED [None]
  - HERPES ZOSTER OPHTHALMIC [None]
  - KERATITIS [None]
  - PAIN [None]
  - UVEITIS [None]
